FAERS Safety Report 20167232 (Version 1)
Quarter: 2021Q4

REPORT INFORMATION
  Report Type: Other
  Country: US (occurrence: US)
  Receive Date: 20211209
  Receipt Date: 20211209
  Transmission Date: 20220303
  Serious: No
  Sender: FDA-Public Use
  Company Number: US-JUBILANT CADISTA PHARMACEUTICALS-2021JUB00286

PATIENT
  Age: 56 Year
  Sex: Female
  Weight: 106.58 kg

DRUGS (9)
  1. METHYLPREDNISOLONE [Suspect]
     Active Substance: METHYLPREDNISOLONE
     Indication: Epinephrine decreased
     Dosage: 6 MG, 1X/DAY
     Route: 048
     Dates: start: 202108, end: 2021
  2. METHYLPREDNISOLONE [Suspect]
     Active Substance: METHYLPREDNISOLONE
     Indication: Cushing^s syndrome
     Dosage: 6 MG, EVERY OTHER DAY (ALTERNATING WITH 8 MG EVERY OTHER DAY)
     Route: 048
     Dates: start: 2021, end: 2021
  3. METHYLPREDNISOLONE [Suspect]
     Active Substance: METHYLPREDNISOLONE
     Dosage: 8 MG, EVERY OTHER DAY (ALTERNATING WITH 6 MG EVERY OTHER DAY)
     Route: 048
     Dates: start: 2021, end: 2021
  4. METHYLPREDNISOLONE [Suspect]
     Active Substance: METHYLPREDNISOLONE
     Dosage: 8 MG, 1X/DAY
     Route: 048
     Dates: start: 2021, end: 20210927
  5. MOTRIN [Concomitant]
     Active Substance: IBUPROFEN
  6. GAS-X [Concomitant]
     Active Substance: DIMETHICONE
  7. VITAMIN B12 [Concomitant]
     Active Substance: CYANOCOBALAMIN
  8. VITAMIN D [Concomitant]
     Active Substance: VITAMIN D NOS
  9. ZOPITIN [Concomitant]

REACTIONS (4)
  - Fatigue [Recovering/Resolving]
  - Performance status decreased [Recovering/Resolving]
  - Asthenia [Recovering/Resolving]
  - Therapeutic product effect decreased [Recovered/Resolved]

NARRATIVE: CASE EVENT DATE: 20210801
